FAERS Safety Report 4912359-7 (Version None)
Quarter: 2006Q1

REPORT INFORMATION
  Report Type: 
  Country: None (occurrence: None)
  Receive Date: 20060215
  Receipt Date: 20050120
  Transmission Date: 20060701
  Serious: No
  Sender: FDA-Public Use
  Company Number: US-GLAXOSMITHKLINE-A0541529A

PATIENT
  Sex: Female

DRUGS (5)
  1. VALTREX [Suspect]
     Dosage: 500MG PER DAY
     Route: 048
     Dates: start: 20041201
  2. LEXAPRO [Concomitant]
  3. KLONOPIN [Concomitant]
  4. ORTHO-CEPT [Concomitant]
  5. ALLEGRA [Concomitant]

REACTIONS (2)
  - CONSTIPATION [None]
  - MENORRHAGIA [None]
